FAERS Safety Report 6013918-3 (Version None)
Quarter: 2008Q4

REPORT INFORMATION
  Report Type: 
  Country: None (occurrence: None)
  Receive Date: 20081219
  Receipt Date: 20081210
  Transmission Date: 20090506
  Serious: Yes (Hospitalization)
  Sender: FDA-Public Use
  Company Number: NL-JNJFOC-20081203268

PATIENT
  Sex: Female

DRUGS (9)
  1. REMICADE [Suspect]
     Route: 042
  2. REMICADE [Suspect]
     Route: 042
  3. REMICADE [Suspect]
     Route: 042
  4. REMICADE [Suspect]
     Route: 042
  5. REMICADE [Suspect]
     Indication: CROHN'S DISEASE
     Route: 042
  6. SALOFALK [Concomitant]
     Indication: CROHN'S DISEASE
  7. AZATHIOPRINE [Concomitant]
     Indication: CROHN'S DISEASE
  8. TRAMADOL HCL [Concomitant]
     Indication: CROHN'S DISEASE
  9. PREDNISONE TAB [Concomitant]
     Indication: CROHN'S DISEASE

REACTIONS (2)
  - CROHN'S DISEASE [None]
  - GASTROENTERITIS [None]
